FAERS Safety Report 4449737-9 (Version None)
Quarter: 2004Q3

REPORT INFORMATION
  Report Type: 
  Country: None (occurrence: None)
  Receive Date: 20040913
  Receipt Date: 20040827
  Transmission Date: 20050211
  Serious: Yes (Death)
  Sender: FDA-Public Use
  Company Number: 04P-028-0271866-00

PATIENT
  Age: 45 Year
  Sex: Male
  Weight: 56.5 kg

DRUGS (7)
  1. KALETRA [Suspect]
     Indication: ACQUIRED IMMUNODEFICIENCY SYNDROME
     Dosage: 5 CAPSULES, 2 IN 1 D, PER ORAL
     Route: 048
     Dates: start: 20040312, end: 20040325
  2. RISPERIDONE [Concomitant]
  3. ZIDOVUDINE W/ LAMIVUDINE [Concomitant]
  4. PHENYTOIN SODIUM [Concomitant]
  5. BACTRIM [Concomitant]
  6. ZITHROMAX [Concomitant]
  7. LORAZEPAM [Concomitant]

REACTIONS (6)
  - DEPRESSED LEVEL OF CONSCIOUSNESS [None]
  - DRUG INTERACTION [None]
  - HEART RATE INCREASED [None]
  - NEUROLEPTIC MALIGNANT SYNDROME [None]
  - PNEUMONIA ASPIRATION [None]
  - SEPSIS [None]
